FAERS Safety Report 16560061 (Version 1)
Quarter: 2019Q3

REPORT INFORMATION
  Report Type: Spontaneous
  Country: US (occurrence: US)
  Receive Date: 20190530
  Receipt Date: 20190530
  Transmission Date: 20191004
  Serious: Yes (Hospitalization)
  Sender: FDA-Public Use
  Company Number: None

PATIENT

DRUGS (1)
  1. VASOPRESSIN INJECTION [Suspect]
     Active Substance: VASOPRESSIN

REACTIONS (3)
  - Bradycardia [None]
  - Product dispensing error [None]
  - Product prescribing error [None]
